FAERS Safety Report 6039505-9 (Version None)
Quarter: 2009Q1

REPORT INFORMATION
  Report Type: 
  Country: None (occurrence: None)
  Receive Date: 20090114
  Receipt Date: 20090106
  Transmission Date: 20090719
  Serious: No
  Sender: FDA-Public Use
  Company Number: US025258

PATIENT
  Age: 24 Year
  Sex: Male

DRUGS (1)
  1. FENTORA [Suspect]
     Indication: HEADACHE
     Dosage: 2 OR 3 OCCASIONS

REACTIONS (4)
  - DYSPNOEA [None]
  - MEDICATION ERROR [None]
  - SELF-MEDICATION [None]
  - SOMNOLENCE [None]
